FAERS Safety Report 9173886 (Version 1)
Quarter: 2013Q1

REPORT INFORMATION
  Report Type: Spontaneous
  Country: ES (occurrence: ES)
  Receive Date: 20130320
  Receipt Date: 20130320
  Transmission Date: 20140127
  Serious: Yes (Other)
  Sender: FDA-Public Use
  Company Number: ES-SANOFI-AVENTIS-2013SA024817

PATIENT
  Age: 38 Year
  Sex: Female

DRUGS (5)
  1. CLEXANE [Suspect]
     Indication: THROMBOSIS PROPHYLAXIS
     Dosage: 20MG
     Route: 058
     Dates: start: 20121016, end: 20121024
  2. AMOXICILLIN/CLAVULANIC ACID [Suspect]
     Indication: PRODUCT USED FOR UNKNOWN INDICATION
     Dosage: } 1G/ 8H IV DURING 4 DAYS FOLLOWED BY 875MG/8H PO
     Route: 048
     Dates: start: 20121016, end: 20121024
  3. PARACETAMOL [Suspect]
     Indication: PRODUCT USED FOR UNKNOWN INDICATION
     Dosage: 1GR/8H IV
     Route: 042
     Dates: start: 20121015, end: 20121024
  4. METHYLPREDNISOLONE [Concomitant]
     Indication: BRONCHOSPASM
     Dosage: } 40MG/ 8H AT DECREASING DOSE EVERY 3 DAYS REDUCTION TO 1/2
     Route: 048
     Dates: start: 20121016
  5. PANTOPRAZOLE [Concomitant]
     Indication: PROPHYLAXIS AGAINST GASTROINTESTINAL ULCER
     Route: 048
     Dates: start: 20121016

REACTIONS (1)
  - Hepatitis [Recovered/Resolved]
